FAERS Safety Report 8910416 (Version 1)
Quarter: 2012Q4

REPORT INFORMATION
  Report Type: 
  Country: US (occurrence: US)
  Receive Date: 20121114
  Receipt Date: 20121114
  Transmission Date: 20130627
  Serious: Yes (Other)
  Sender: FDA-Public Use
  Company Number: US-BAYER-2012-119050

PATIENT
  Age: 76 Year
  Sex: Male
  Weight: 99.77 kg

DRUGS (5)
  1. BAYER ASPIRIN REGIMEN ADULT LOW STRENGTH [Suspect]
     Indication: MYOCARDIAL INFARCT PROPHYLAXIS
     Dosage: 1 DF, QD
     Route: 048
     Dates: start: 2010
  2. AVAPRO [Concomitant]
  3. TOPROL [Concomitant]
  4. LIPITOR [Concomitant]
  5. ONE-A-DAY MEN^S HEALTH [Concomitant]

REACTIONS (2)
  - Haemoptysis [Recovered/Resolved]
  - Haemoptysis [Recovered/Resolved]
